FAERS Safety Report 13402597 (Version 2)
Quarter: 2017Q2

REPORT INFORMATION
  Report Type: Spontaneous
  Country: US (occurrence: US)
  Receive Date: 20170404
  Receipt Date: 20170509
  Transmission Date: 20170830
  Serious: Yes (Hospitalization, Other)
  Sender: FDA-Public Use
  Company Number: US-SMITH AND NEPHEW, INC-2017SMT00204

PATIENT
  Age: 83 Year
  Sex: Female

DRUGS (32)
  1. OMEPRAZOLE. [Concomitant]
     Active Substance: OMEPRAZOLE
     Indication: GASTROOESOPHAGEAL REFLUX DISEASE
     Dosage: 20 MG, 1X/DAY
     Route: 048
     Dates: start: 20161018
  2. KEFLEX [Concomitant]
     Active Substance: CEPHALEXIN
     Indication: WOUND
     Dosage: 250 MG, 2X/DAY
     Route: 048
     Dates: start: 20170320
  3. ALBUTEROL SULFATE. [Concomitant]
     Active Substance: ALBUTEROL SULFATE
     Indication: DYSPNOEA
     Dosage: 2.5 MG, 6X/DAY
     Route: 055
     Dates: start: 20161018
  4. AMLODIPINE [Concomitant]
     Active Substance: AMLODIPINE BESYLATE
     Indication: HYPERTENSION
     Dosage: 5 MG, 1X/DAY
     Route: 048
  5. BISACODYL. [Concomitant]
     Active Substance: BISACODYL
     Indication: CONSTIPATION
     Dosage: 10 MG, 1X/DAY AS NEEDED
     Route: 054
     Dates: start: 20161018
  6. FLORASTOR [Concomitant]
     Active Substance: SACCHAROMYCES CEREVISIAE
     Dosage: 250 MG, 3X/DAY
     Dates: start: 20170219, end: 20170226
  7. HYDRALAZINE [Concomitant]
     Active Substance: HYDRALAZINE HYDROCHLORIDE
     Indication: HYPERTENSION
     Dosage: 25 MG, 4X/DAY
     Route: 048
     Dates: start: 20161018
  8. KLOR-CON ER [Concomitant]
     Indication: HYPOKALAEMIA
     Dosage: 10 MEQ, 1X/DAY
     Route: 048
     Dates: start: 20161018
  9. KEFLEX [Concomitant]
     Active Substance: CEPHALEXIN
     Dosage: 500 MG (TITER), 3X/DAY
     Dates: start: 20161113, end: 20170320
  10. BISACODYL. [Concomitant]
     Active Substance: BISACODYL
     Indication: CONSTIPATION
     Dosage: 10 MG, 1X/DAY
     Route: 048
     Dates: start: 20161018
  11. FUROSEMIDE. [Concomitant]
     Active Substance: FUROSEMIDE
     Indication: HYPERTENSION
     Dosage: 40 MG, 1X/DAY
     Route: 048
     Dates: start: 20170218
  12. ISOSORBIDE MONONITRATE ER [Concomitant]
     Active Substance: ISOSORBIDE MONONITRATE
     Indication: HYPERTENSION
     Dosage: 60 MG, 1X/DAY
     Route: 048
     Dates: start: 20171018
  13. ACETAMINOPHEN. [Concomitant]
     Active Substance: ACETAMINOPHEN
     Indication: PAIN
     Dosage: 650 MG, UP TO 4X/DAY AS NEEDED
     Route: 048
     Dates: start: 20161018
  14. BISACODYL. [Concomitant]
     Active Substance: BISACODYL
     Dosage: UNK
  15. METOCLOPRAMIDE. [Concomitant]
     Active Substance: METOCLOPRAMIDE
     Indication: NAUSEA
     Dosage: 2.5 MG, 4X/DAY
     Route: 048
     Dates: start: 20161129
  16. NORCO [Concomitant]
     Active Substance: ACETAMINOPHEN\HYDROCODONE BITARTRATE
     Indication: PAIN
     Dosage: 10 MG, UP TO 4X/DAY
     Route: 048
     Dates: start: 20161103
  17. PRAVASTATIN. [Concomitant]
     Active Substance: PRAVASTATIN
     Indication: HYPERLIPIDAEMIA
     Dosage: 40 MG, 1X/DAY
     Route: 048
     Dates: start: 20171018
  18. AMPICILLIN [Concomitant]
     Active Substance: AMPICILLIN
     Dosage: 500 MG (TITER), 2X/DAY
     Route: 048
     Dates: start: 20170319
  19. FUROSEMIDE. [Concomitant]
     Active Substance: FUROSEMIDE
     Indication: OEDEMA
     Dosage: 80 MG, 1X/DAY
     Route: 048
     Dates: start: 20170220
  20. REGRANEX [Suspect]
     Active Substance: BECAPLERMIN
     Indication: WOUND
     Dosage: UNK 1X/DAY ON MONDAY, WEDNESDAY, AND FRIDAY
     Route: 061
     Dates: start: 20170223
  21. FLORASTOR [Concomitant]
     Active Substance: SACCHAROMYCES CEREVISIAE
     Dosage: 250 MG, 2X/DAY
     Dates: start: 20161113
  22. FOLIC ACID. [Concomitant]
     Active Substance: FOLIC ACID
     Dosage: 1 MG, 1X/DAY
     Route: 048
  23. METOCLOPRAMIDE. [Concomitant]
     Active Substance: METOCLOPRAMIDE
     Indication: VOMITING
  24. NEPHRO-VITE [Concomitant]
     Dosage: 1 TABLETS, 1X/DAY
     Route: 048
     Dates: start: 20161018
  25. NOVOLOG [Concomitant]
     Active Substance: INSULIN ASPART
     Indication: DIABETES MELLITUS
     Dosage: UNK, 4X/DAY PER SLIDING SCALE
     Route: 058
     Dates: start: 20161018
  26. ASPIRIN. [Concomitant]
     Active Substance: ASPIRIN
     Indication: CORONARY ARTERY DISEASE
     Dosage: 81 MG, 1X/DAY
     Route: 048
  27. LEVEMIR [Concomitant]
     Active Substance: INSULIN DETEMIR
     Indication: DIABETES MELLITUS
     Dosage: 15 U, 1X/DAY
     Route: 058
     Dates: start: 20170218
  28. POLYETHYLENE GLYCOL 3350. [Concomitant]
     Active Substance: POLYETHYLENE GLYCOL 3350
     Indication: CONSTIPATION
     Dosage: 17 G, 1X/DAY
     Route: 048
     Dates: start: 20161018
  29. BENZONATATE. [Concomitant]
     Active Substance: BENZONATATE
     Indication: COUGH
     Dosage: 200 MG, 3X/DAY
     Route: 048
     Dates: start: 20161018
  30. LACTULOSE. [Concomitant]
     Active Substance: LACTULOSE
     Indication: CONSTIPATION
     Dosage: 10 G, 1X/DAY
     Route: 048
     Dates: start: 20161018
  31. MILK OF MAGNESIA [Concomitant]
     Active Substance: MAGNESIUM HYDROXIDE
     Dosage: 2400 MG, UP TO 1X/DAY
     Route: 048
     Dates: start: 20161018
  32. DOXYCYCLINE HYCLATE. [Concomitant]
     Active Substance: DOXYCYCLINE HYCLATE
     Indication: WOUND INFECTION STAPHYLOCOCCAL
     Dosage: 100 MG, 2X/DAY
     Route: 048
     Dates: start: 20170320

REACTIONS (6)
  - Drug ineffective [Not Recovered/Not Resolved]
  - Hypotension [Not Recovered/Not Resolved]
  - Inappropriate schedule of drug administration [Not Recovered/Not Resolved]
  - Oxygen saturation decreased [Not Recovered/Not Resolved]
  - Wound infection staphylococcal [Unknown]
  - Confusional state [Unknown]

NARRATIVE: CASE EVENT DATE: 20170223
